FAERS Safety Report 5444813-6 (Version None)
Quarter: 2007Q3

REPORT INFORMATION
  Report Type: 
  Country: None (occurrence: None)
  Receive Date: 20070906
  Receipt Date: 20070829
  Transmission Date: 20080115
  Serious: Yes (Hospitalization, Other)
  Sender: FDA-Public Use
  Company Number: US-AMGEN-US241114

PATIENT
  Sex: Female

DRUGS (1)
  1. ENBREL [Suspect]
     Indication: PSORIASIS
     Route: 058
     Dates: start: 20070101, end: 20070401

REACTIONS (5)
  - CARDIAC FAILURE [None]
  - DIABETES MELLITUS [None]
  - HEART RATE IRREGULAR [None]
  - RASH [None]
  - SWELLING FACE [None]
